FAERS Safety Report 24068125 (Version 2)
Quarter: 2024Q3

REPORT INFORMATION
  Report Type: Spontaneous
  Country: US (occurrence: US)
  Receive Date: 20240710
  Receipt Date: 20240729
  Transmission Date: 20241017
  Serious: Yes (Other)
  Sender: GRIFOLS
  Company Number: US-IGSA-BIG0029647

PATIENT
  Age: 57 Year
  Sex: Female

DRUGS (8)
  1. XEMBIFY [Suspect]
     Active Substance: HUMAN IMMUNOGLOBULIN G
     Indication: Product used for unknown indication
     Dosage: 7 GRAM, Q.WK.
     Route: 058
     Dates: start: 202210
  2. XEMBIFY [Suspect]
     Active Substance: HUMAN IMMUNOGLOBULIN G
     Dosage: 10 GRAM, Q.WK.
     Route: 058
     Dates: start: 202303, end: 202406
  3. XEMBIFY [Suspect]
     Active Substance: HUMAN IMMUNOGLOBULIN G
     Dosage: UNK
  4. RYALTRIS [MOMETASONE FUROATE;OLOPATADINE HYDROCHLORIDE] [Concomitant]
  5. ITRACONAZOLE [Concomitant]
     Active Substance: ITRACONAZOLE
  6. CLOTRIMAZOLE [Concomitant]
     Active Substance: CLOTRIMAZOLE
  7. ONDANSETRON [Concomitant]
     Active Substance: ONDANSETRON
  8. XOPENEX [Concomitant]
     Active Substance: LEVALBUTEROL HYDROCHLORIDE

REACTIONS (4)
  - Infusion site necrosis [Recovered/Resolved with Sequelae]
  - Infusion site bruising [Recovered/Resolved with Sequelae]
  - Infusion site swelling [Recovered/Resolved with Sequelae]
  - Infusion site pain [Recovered/Resolved with Sequelae]
